FAERS Safety Report 6603032-8 (Version None)
Quarter: 2010Q1

REPORT INFORMATION
  Report Type: 
  Country: None (occurrence: None)
  Receive Date: 20100218
  Receipt Date: 20100209
  Transmission Date: 20100710
  Serious: Yes (Hospitalization)
  Sender: FDA-Public Use
  Company Number: SPV1-2009-02602

PATIENT
  Age: 70 Year
  Sex: Female

DRUGS (6)
  1. FOSRENOL [Suspect]
     Indication: HYPERPHOSPHATAEMIA
     Dosage: 750 MG, 1X/DAY:QD, ORAL
     Route: 048
     Dates: start: 20090812, end: 20091028
  2. LOPERAMIDE HCL [Suspect]
     Indication: DIARRHOEA
     Dosage: 2 MG, ORAL
     Route: 048
     Dates: start: 20091014, end: 20091028
  3. LEVOFLOXACIN [Suspect]
     Indication: DIARRHOEA
  4. BIO THREE /01068501/(BACTERIA NOS) [Suspect]
     Indication: DIARRHOEA
     Dosage: ORAL
     Route: 048
  5. CALTAN (CALCIUM CARBONATE) [Concomitant]
  6. RENAGEL [Concomitant]

REACTIONS (5)
  - ACUTE ABDOMEN [None]
  - FAECALOMA [None]
  - GASTROENTERITIS ESCHERICHIA COLI [None]
  - HAEMODIALYSIS [None]
  - ILEUS [None]
